FAERS Safety Report 6458601-5 (Version None)
Quarter: 2009Q4

REPORT INFORMATION
  Report Type: 
  Country: None (occurrence: None)
  Receive Date: 20091126
  Receipt Date: 20091118
  Transmission Date: 20100525
  Serious: Yes (Life-Threatening, Other)
  Sender: FDA-Public Use
  Company Number: JP-BRISTOL-MYERS SQUIBB COMPANY-14804595

PATIENT
  Age: 72 Year
  Sex: Female

DRUGS (1)
  1. HYDREA [Suspect]
     Indication: POLYCYTHAEMIA VERA
     Route: 048

REACTIONS (3)
  - LEUKAEMIA [None]
  - OVARIAN CANCER METASTATIC [None]
  - PLEURAL EFFUSION [None]
